FAERS Safety Report 12631378 (Version 2)
Quarter: 2016Q3

REPORT INFORMATION
  Report Type: Spontaneous
  Country: US (occurrence: US)
  Receive Date: 20160808
  Receipt Date: 20160808
  Transmission Date: 20161109
  Serious: No
  Sender: FDA-Public Use
  Company Number: US-BEH-2015053627

PATIENT
  Sex: Female
  Weight: 67 kg

DRUGS (18)
  1. DIPHENHYDRAMINE. [Concomitant]
     Active Substance: DIPHENHYDRAMINE
     Indication: ANAPHYLACTIC REACTION
  2. EPIPEN [Concomitant]
     Active Substance: EPINEPHRINE
     Indication: ANAPHYLACTIC REACTION
  3. LIPITOR [Concomitant]
     Active Substance: ATORVASTATIN CALCIUM
  4. FOLBIC [Concomitant]
     Active Substance: CYANOCOBALAMIN\FOLIC ACID\PYRIDOXINE
  5. POTASSIUM CHLORIDE. [Concomitant]
     Active Substance: POTASSIUM CHLORIDE
  6. MUCINEX [Concomitant]
     Active Substance: GUAIFENESIN
  7. ADVAIR HFA [Concomitant]
     Active Substance: FLUTICASONE PROPIONATE\SALMETEROL XINAFOATE
  8. TOPAMAX [Concomitant]
     Active Substance: TOPIRAMATE
  9. FLUOCINOLONE ACETONIDE. [Concomitant]
     Active Substance: FLUOCINOLONE ACETONIDE
  10. NYSTATIN. [Concomitant]
     Active Substance: NYSTATIN
  11. FUROSEMIDE. [Concomitant]
     Active Substance: FUROSEMIDE
  12. ASPIRIN. [Concomitant]
     Active Substance: ASPIRIN
  13. LIBRIUM [Concomitant]
     Active Substance: CHLORDIAZEPOXIDE HYDROCHLORIDE
  14. ALLOPURINOL. [Concomitant]
     Active Substance: ALLOPURINOL
  15. FLEXERIL [Concomitant]
     Active Substance: CYCLOBENZAPRINE HYDROCHLORIDE
  16. PREVACID [Concomitant]
     Active Substance: LANSOPRAZOLE
  17. ALBUTEROL. [Concomitant]
     Active Substance: ALBUTEROL
  18. HIZENTRA [Suspect]
     Active Substance: HUMAN IMMUNOGLOBULIN G
     Indication: IMMUNODEFICIENCY COMMON VARIABLE
     Route: 058

REACTIONS (2)
  - Mouth ulceration [Unknown]
  - Oral mucosal blistering [Unknown]
